FAERS Safety Report 5604936-5 (Version None)
Quarter: 2008Q1

REPORT INFORMATION
  Report Type: 
  Country: None (occurrence: None)
  Receive Date: 20080128
  Receipt Date: 20080123
  Transmission Date: 20080703
  Serious: Yes (Other)
  Sender: FDA-Public Use
  Company Number: US-BOEHRINGER INGELHEIM PHARMACEUTICALS, INC.-2007-BP-21840BP

PATIENT
  Sex: Female

DRUGS (2)
  1. VIRAMUNE [Suspect]
     Route: 048
  2. COMBIVIR [Concomitant]

REACTIONS (3)
  - HYPERSENSITIVITY [None]
  - LIP EXFOLIATION [None]
  - LIP SWELLING [None]
